FAERS Safety Report 7504865-6 (Version None)
Quarter: 2011Q2

REPORT INFORMATION
  Report Type: 
  Country: None (occurrence: None)
  Receive Date: 20110526
  Receipt Date: 20110505
  Transmission Date: 20111010
  Serious: Yes (Hospitalization, Other)
  Sender: FDA-Public Use
  Company Number: DE-AMGEN-DEUCT2010000916

PATIENT
  Sex: Female

DRUGS (8)
  1. TOPAMAX [Concomitant]
     Dosage: 100 MG, 1-1-1
  2. ARCOXIA [Concomitant]
     Dosage: UNK
  3. ORTOTON                            /00047901/ [Concomitant]
     Dosage: 750 MG, 2-2-2
  4. ETANERCEPT [Suspect]
     Indication: RHEUMATOID ARTHRITIS
     Dosage: 50 MG, QWK
     Route: 058
     Dates: start: 20100222
  5. OMEPRAZOLE [Concomitant]
     Dosage: UNK
  6. CYMBALTA [Concomitant]
     Dosage: 30 MG, 2-0-0
  7. METOHEXAL                          /00376902/ [Concomitant]
     Dosage: 47.5 MG, 1/2-0-1/2
  8. PREDNISOLONE [Concomitant]
     Dosage: 5 MG, UNK

REACTIONS (6)
  - PSORIATIC ARTHROPATHY [None]
  - PAIN [None]
  - DEPRESSION [None]
  - COLON ADENOMA [None]
  - HYPERTENSION [None]
  - COLITIS [None]
